FAERS Safety Report 16663349 (Version 1)
Quarter: 2019Q3

REPORT INFORMATION
  Report Type: Report from Study
  Country: US (occurrence: US)
  Receive Date: 20190802
  Receipt Date: 20190802
  Transmission Date: 20191004
  Serious: No
  Sender: FDA-Public Use
  Company Number: US-EXELIXIS-CABO-19019659

PATIENT
  Age: 68 Year
  Sex: Male
  Weight: 83.99 kg

DRUGS (29)
  1. PROMACTA [Concomitant]
     Active Substance: ELTROMBOPAG OLAMINE
  2. BISOPROLOL [Concomitant]
     Active Substance: BISOPROLOL
  3. VITAMIN B6 [Concomitant]
     Active Substance: PYRIDOXINE HYDROCHLORIDE
  4. OLANZAPINE. [Concomitant]
     Active Substance: OLANZAPINE
  5. FUROSEMIDE. [Concomitant]
     Active Substance: FUROSEMIDE
  6. LANTUS [Concomitant]
     Active Substance: INSULIN GLARGINE
  7. MOMETASONE [Concomitant]
     Active Substance: MOMETASONE
  8. HYDRALAZINE [Concomitant]
     Active Substance: HYDRALAZINE HYDROCHLORIDE
  9. MAGNESIUM [Concomitant]
     Active Substance: MAGNESIUM
  10. VITAMIN B12 [Concomitant]
     Active Substance: CYANOCOBALAMIN
  11. HYDROMORPHONE [Concomitant]
     Active Substance: HYDROMORPHONE
  12. NIFEDIPINE. [Concomitant]
     Active Substance: NIFEDIPINE
  13. METHYLPHENIDATE. [Concomitant]
     Active Substance: METHYLPHENIDATE
  14. TAMSULOSIN [Concomitant]
     Active Substance: TAMSULOSIN
  15. DULOXETINE. [Concomitant]
     Active Substance: DULOXETINE
  16. CABOMETYX [Suspect]
     Active Substance: CABOZANTINIB S-MALATE
     Indication: RENAL CELL CARCINOMA
     Dosage: 20 MG, QD
     Route: 048
     Dates: start: 20180214
  17. CENTRUM [Concomitant]
     Active Substance: VITAMINS
  18. FISH OIL [Concomitant]
     Active Substance: FISH OIL
  19. IRON [Concomitant]
     Active Substance: IRON
  20. AMLODIPINE [Concomitant]
     Active Substance: AMLODIPINE BESYLATE
  21. PREDNISONE. [Concomitant]
     Active Substance: PREDNISONE
  22. ZYTIGA [Concomitant]
     Active Substance: ABIRATERONE ACETATE
  23. SENEXON-S [Concomitant]
     Active Substance: DOCUSATE SODIUM\SENNOSIDES A AND B
  24. HUMALOG [Concomitant]
     Active Substance: INSULIN LISPRO
  25. FOLIC ACID. [Concomitant]
     Active Substance: FOLIC ACID
  26. FENTANYL. [Concomitant]
     Active Substance: FENTANYL
  27. GABAPENTIN. [Concomitant]
     Active Substance: GABAPENTIN
  28. ZINC SULFATE. [Concomitant]
     Active Substance: ZINC SULFATE
  29. ATORVASTATIN [Concomitant]
     Active Substance: ATORVASTATIN

REACTIONS (1)
  - Fall [Unknown]

NARRATIVE: CASE EVENT DATE: 201903
